FAERS Safety Report 8078740-5 (Version None)
Quarter: 2012Q1

REPORT INFORMATION
  Report Type: 
  Country: None (occurrence: None)
  Receive Date: 20120124
  Receipt Date: 20120109
  Transmission Date: 20120608
  Serious: Yes (Death)
  Sender: FDA-Public Use
  Company Number: 2012MA000672

PATIENT
  Age: 40 Year
  Sex: Male
  Weight: 97.0698 kg

DRUGS (5)
  1. ALCOHOL [Concomitant]
  2. PAREGORIC LIQUID USP (ALPHARMA) [Suspect]
  3. CODEINE SULFATE [Concomitant]
  4. HEROIN [Concomitant]
  5. METHADONE HCL [Concomitant]

REACTIONS (2)
  - ROAD TRAFFIC ACCIDENT [None]
  - FALL [None]
